FAERS Safety Report 8378502-5 (Version None)
Quarter: 2012Q2

REPORT INFORMATION
  Report Type: 
  Country: None (occurrence: None)
  Receive Date: 20120522
  Receipt Date: 20120518
  Transmission Date: 20120825
  Serious: Yes (Other)
  Sender: FDA-Public Use
  Company Number: US-JNJFOC-20120408675

PATIENT

DRUGS (1)
  1. XARELTO [Suspect]
     Indication: JOINT ARTHROPLASTY
     Route: 048

REACTIONS (2)
  - ANXIETY [None]
  - WOUND DRAINAGE [None]
